FAERS Safety Report 20553319 (Version 2)
Quarter: 2022Q4

REPORT INFORMATION
  Report Type: Spontaneous
  Country: US (occurrence: US)
  Receive Date: 20220304
  Receipt Date: 20221025
  Transmission Date: 20230112
  Serious: No
  Sender: FDA-Public Use
  Company Number: US-PFIZER INC-2021600560

PATIENT
  Age: 79 Year
  Sex: Female

DRUGS (1)
  1. QUINAPRIL [Suspect]
     Active Substance: QUINAPRIL
     Indication: Blood pressure abnormal
     Dosage: 30 MG (CUT THE PILLS, THE 20MG AND THE 40MG TO GET THE 30MG DOSE)

REACTIONS (4)
  - Wrong technique in product usage process [Unknown]
  - Intentional product misuse [Unknown]
  - Arthralgia [Unknown]
  - Pain [Unknown]
